FAERS Safety Report 5695657-1 (Version None)
Quarter: 2008Q2

REPORT INFORMATION
  Report Type: 
  Country: None (occurrence: None)
  Receive Date: 20080407
  Receipt Date: 20071120
  Transmission Date: 20081010
  Serious: No
  Sender: FDA-Public Use
  Company Number: US-BAYER-200715831NA

PATIENT
  Age: 53 Year
  Sex: Female
  Weight: 58 kg

DRUGS (3)
  1. MIRENA [Suspect]
     Indication: VAGINAL HAEMORRHAGE
     Route: 015
     Dates: start: 20070201
  2. LEXAPRO [Concomitant]
  3. PROTONIX [Concomitant]

REACTIONS (5)
  - ABDOMINAL PAIN LOWER [None]
  - FATIGUE [None]
  - HEADACHE [None]
  - METRORRHAGIA [None]
  - PREMENSTRUAL SYNDROME [None]
